FAERS Safety Report 4626866-8 (Version None)
Quarter: 2005Q2

REPORT INFORMATION
  Report Type: 
  Country: None (occurrence: None)
  Receive Date: 20050405
  Receipt Date: 20050323
  Transmission Date: 20051028
  Serious: Yes (Other)
  Sender: FDA-Public Use
  Company Number: US-AMGEN-US122969

PATIENT
  Sex: Female

DRUGS (1)
  1. KINERET [Suspect]
     Indication: RHEUMATOID ARTHRITIS

REACTIONS (2)
  - LUNG ABSCESS [None]
  - PULMONARY COCCIDIOIDES [None]
